FAERS Safety Report 10170564 (Version 1)
Quarter: 2014Q2

REPORT INFORMATION
  Report Type: Spontaneous
  Country: AT (occurrence: AT)
  Receive Date: 20140513
  Receipt Date: 20140513
  Transmission Date: 20141212
  Serious: Yes (Other)
  Sender: FDA-Public Use
  Company Number: AT-009507513-1405AUT004657

PATIENT
  Sex: Female

DRUGS (3)
  1. ESMERON [Suspect]
     Indication: ANAESTHESIA
     Dosage: 0.5 MG/KG BODY WEIGHT
  2. PROPOFOL [Suspect]
     Indication: ANAESTHESIA
     Dosage: UNK
  3. ULTIVA [Concomitant]
     Indication: ANAESTHESIA

REACTIONS (2)
  - Laryngospasm [Unknown]
  - Salivary hypersecretion [Unknown]
